FAERS Safety Report 4477063-0 (Version None)
Quarter: 2004Q4

REPORT INFORMATION
  Report Type: 
  Country: None (occurrence: None)
  Receive Date: 20041018
  Receipt Date: 20041004
  Transmission Date: 20050328
  Serious: Yes (Life-Threatening, Hospitalization)
  Sender: FDA-Public Use
  Company Number: DE-BRISTOL-MYERS SQUIBB COMPANY-12721973

PATIENT
  Sex: Female

DRUGS (3)
  1. ABILIFY [Suspect]
     Indication: SCHIZOAFFECTIVE DISORDER
  2. LAMOTRIGINE [Concomitant]
  3. SOLIAN [Concomitant]

REACTIONS (2)
  - INTENTIONAL SELF-INJURY [None]
  - SCHIZOAFFECTIVE DISORDER [None]
